FAERS Safety Report 15402516 (Version 1)
Quarter: 2018Q3

REPORT INFORMATION
  Report Type: Spontaneous
  Country: US (occurrence: US)
  Receive Date: 20180917
  Receipt Date: 20180917
  Transmission Date: 20181010
  Serious: Yes (Disabling)
  Sender: FDA-Public Use
  Company Number: None

PATIENT
  Age: 20 Year
  Sex: Male
  Weight: 65.25 kg

DRUGS (1)
  1. CIPROFLOXACIN. [Suspect]
     Active Substance: CIPROFLOXACIN
     Indication: URINARY TRACT INFECTION
     Dosage: ?          QUANTITY:20 TABLET(S);?
     Route: 048
     Dates: start: 20180528, end: 20180530

REACTIONS (11)
  - Hypoaesthesia [None]
  - Asthenia [None]
  - Muscle twitching [None]
  - Anxiety [None]
  - Diarrhoea [None]
  - Syncope [None]
  - Fatigue [None]
  - Memory impairment [None]
  - Tinnitus [None]
  - Suicidal ideation [None]
  - Confusional state [None]

NARRATIVE: CASE EVENT DATE: 20180528
